FAERS Safety Report 8881998 (Version 3)
Quarter: 2013Q2

REPORT INFORMATION
  Report Type: Report from Study
  Country: NL (occurrence: NL)
  Receive Date: 20121101
  Receipt Date: 20130506
  Transmission Date: 20140414
  Serious: Yes (Death, Life-Threatening, Hospitalization)
  Sender: FDA-Public Use
  Company Number: NL-BAXTER-2012BAX020981

PATIENT
  Age: 75 Year
  Sex: Male
  Weight: 61 kg

DRUGS (15)
  1. CYCLOPHOSPHAMIDE FOR INJECTION, USP [Suspect]
     Indication: DIFFUSE LARGE B-CELL LYMPHOMA
     Route: 042
     Dates: start: 20111220
  2. RITUXIMAB [Suspect]
     Indication: DIFFUSE LARGE B-CELL LYMPHOMA
     Route: 042
     Dates: start: 20111220
  3. RITUXIMAB [Suspect]
     Route: 042
     Dates: start: 20111227
  4. PREDNISONE [Suspect]
     Indication: DIFFUSE LARGE B-CELL LYMPHOMA
     Route: 048
     Dates: start: 20111220
  5. PREDNISONE [Suspect]
     Route: 048
     Dates: start: 20111224
  6. DOXORUBICIN [Suspect]
     Indication: DIFFUSE LARGE B-CELL LYMPHOMA
     Route: 042
     Dates: start: 20111220
  7. VINCRISTINE [Suspect]
     Indication: DIFFUSE LARGE B-CELL LYMPHOMA
     Route: 042
     Dates: start: 20111220
  8. PEGFILGRASTIM [Suspect]
     Indication: DIFFUSE LARGE B-CELL LYMPHOMA
     Route: 042
     Dates: start: 20111221
  9. PARACETAMOL [Concomitant]
     Indication: PAIN
     Dosage: 500
     Route: 065
     Dates: start: 20111115, end: 20111230
  10. COLCHICINE [Concomitant]
     Indication: GOUT
     Route: 048
     Dates: start: 2011, end: 20111230
  11. PANTOPRAZOL [Concomitant]
     Indication: PRODUCT USED FOR UNKNOWN INDICATION
     Route: 048
     Dates: start: 2011, end: 20111230
  12. MOVICOLON [Concomitant]
     Indication: CONSTIPATION
     Route: 048
     Dates: start: 20110126
  13. MOVICOLON [Concomitant]
     Route: 048
     Dates: start: 20120127
  14. OXAZEPAM [Concomitant]
     Indication: SEDATION
     Route: 048
     Dates: start: 20120126
  15. OXAZEPAM [Concomitant]
     Route: 048
     Dates: start: 20120127

REACTIONS (2)
  - Pulmonary embolism [Recovered/Resolved]
  - Pneumonia aspiration [Fatal]
